FAERS Safety Report 22239094 (Version 1)
Quarter: 2023Q2

REPORT INFORMATION
  Report Type: Report from Study
  Country: US (occurrence: US)
  Receive Date: 20230421
  Receipt Date: 20230421
  Transmission Date: 20230721
  Serious: Yes (Other)
  Sender: FDA-Public Use
  Company Number: US-ABBVIE-4735008

PATIENT
  Sex: Female

DRUGS (1)
  1. HUMIRA [Suspect]
     Active Substance: ADALIMUMAB
     Indication: Rheumatoid arthritis
     Dosage: CF
     Route: 058
     Dates: start: 20230223

REACTIONS (6)
  - Aortic aneurysm [Unknown]
  - Cardiomegaly [Unknown]
  - Nausea [Unknown]
  - Dizziness [Unknown]
  - Menopause [Unknown]
  - Migraine [Recovering/Resolving]
